FAERS Safety Report 9718918 (Version 2)
Quarter: 2014Q4

REPORT INFORMATION
  Report Type: Spontaneous
  Country: GB (occurrence: None)
  Receive Date: 20131126
  Receipt Date: 20141216
  Transmission Date: 20150529
  Serious: Yes (Other)
  Sender: FDA-Public Use
  Company Number: GB-DEXPHARM-20131004

PATIENT
  Age: 52 Year
  Sex: Female

DRUGS (12)
  1. AMITRIPTYLINE [Concomitant]
     Active Substance: AMITRIPTYLINE
     Dosage: 20 MG MILLIGRAM(S) SEP.DOSAGES / INTERVAL: 1 IN 1 DAYS
     Route: 048
     Dates: start: 20131028, end: 20131031
  2. OXYCODONE [Concomitant]
     Active Substance: OXYCODONE
  3. OMEPRAZOLE. [Suspect]
     Active Substance: OMEPRAZOLE
     Indication: ABDOMINAL DISCOMFORT
     Dosage: 10 MG (MILLIGRAM(S) SEP. DOSAGES / INTERVALS : 3 IN 1 DAYS
     Route: 048
     Dates: start: 20131028, end: 20131031
  4. DICLOFENAC GEL [Concomitant]
  5. HYDROCHLOROQUINE [Concomitant]
     Active Substance: HYDROXYCHLOROQUINE SULFATE
  6. TEMAZEPAM. [Concomitant]
     Active Substance: TEMAZEPAM
  7. VITAMIN D [Concomitant]
     Active Substance: CHOLECALCIFEROL
  8. ERGOCALCIFEROL. [Concomitant]
     Active Substance: ERGOCALCIFEROL
  9. FUROSEMIDE. [Concomitant]
     Active Substance: FUROSEMIDE
  10. MORPHINE [Concomitant]
     Active Substance: MORPHINE
  11. PARACETAMOL [Concomitant]
     Active Substance: ACETAMINOPHEN
  12. DIAZEPAM. [Suspect]
     Active Substance: DIAZEPAM
     Dosage: 10 MG 3 IN I DAY.

REACTIONS (12)
  - Amnesia [None]
  - Abnormal sleep-related event [None]
  - Syncope [None]
  - Lethargy [None]
  - Seizure [None]
  - Drug interaction [None]
  - Headache [None]
  - Vision blurred [None]
  - Tremor [None]
  - Fatigue [None]
  - Dry mouth [None]
  - Sleep talking [None]

NARRATIVE: CASE EVENT DATE: 20131028
